FAERS Safety Report 23482018 (Version 1)
Quarter: 2024Q1

REPORT INFORMATION
  Report Type: Spontaneous
  Country: US (occurrence: US)
  Receive Date: 20240205
  Receipt Date: 20240205
  Transmission Date: 20240410
  Serious: No
  Sender: FDA-Public Use
  Company Number: US-Emergent Biosolutions-24000003

PATIENT
  Age: 35 Year
  Sex: Male

DRUGS (8)
  1. CNJ-016 [Suspect]
     Active Substance: HUMAN VACCINIA VIRUS IMMUNE GLOBULIN
     Indication: Monkeypox
     Dosage: 6,000 UNITS/KG
     Route: 042
     Dates: start: 2022, end: 2022
  2. BRINCIDOFOVIR [Suspect]
     Active Substance: BRINCIDOFOVIR
     Indication: Monkeypox
     Dosage: 200 MILLIGRAM/WEEK, FOR SIX DOSES
     Route: 048
     Dates: start: 2022, end: 2022
  3. TECOVIRIMAT [Concomitant]
     Active Substance: TECOVIRIMAT
     Indication: Monkeypox
     Dosage: 600 MILLIGRAM, BID
     Route: 048
     Dates: start: 2022, end: 2022
  4. TECOVIRIMAT [Concomitant]
     Active Substance: TECOVIRIMAT
     Indication: HIV infection
     Dosage: UNK
     Route: 048
     Dates: start: 2022, end: 2022
  5. CEPHALEXIN [Concomitant]
     Active Substance: CEPHALEXIN
     Indication: Paronychia
     Dosage: UNK
     Route: 065
     Dates: start: 2022
  6. BICTEGRAVIR\EMTRICITABINE\TENOFOVIR ALAFENAMIDE [Concomitant]
     Active Substance: BICTEGRAVIR\EMTRICITABINE\TENOFOVIR ALAFENAMIDE
     Indication: HIV infection
     Dosage: UNK
     Route: 065
     Dates: start: 2022
  7. CIDOFOVIR [Concomitant]
     Active Substance: CIDOFOVIR
     Indication: Monkeypox
     Dosage: 05 MG/KG, WEEKLY, FOR 2 DOSES
     Route: 042
     Dates: start: 2022, end: 2022
  8. CIDOFOVIR [Concomitant]
     Active Substance: CIDOFOVIR
     Dosage: 01 PERCENT
     Route: 061
     Dates: start: 2022, end: 2022

REACTIONS (1)
  - Off label use [Unknown]

NARRATIVE: CASE EVENT DATE: 20220101
